FAERS Safety Report 18898845 (Version 1)
Quarter: 2021Q1

REPORT INFORMATION
  Report Type: Spontaneous
  Country: US (occurrence: US)
  Receive Date: 20210215
  Receipt Date: 20210215
  Transmission Date: 20210420
  Serious: Yes (Disabling)
  Sender: FDA-Public Use
  Company Number: None

PATIENT
  Age: 63 Year
  Sex: Female
  Weight: 79.2 kg

DRUGS (1)
  1. MANUKA HONEY ALLERCLEANSE [Suspect]
     Active Substance: HERBALS\HONEY
     Indication: SINUS CONGESTION
     Dosage: ?          QUANTITY:1 SPRAY(S);OTHER ROUTE:SPRAY IN NOSTRIL?
     Route: 045
     Dates: start: 20210201, end: 20210213

REACTIONS (3)
  - Nasopharyngitis [None]
  - Headache [None]
  - Sinus congestion [None]

NARRATIVE: CASE EVENT DATE: 20210201
